FAERS Safety Report 8522343-2 (Version None)
Quarter: 2012Q3

REPORT INFORMATION
  Report Type: 
  Country: None (occurrence: None)
  Receive Date: 20120719
  Receipt Date: 20120705
  Transmission Date: 20120928
  Serious: Yes (Other)
  Sender: FDA-Public Use
  Company Number: CHPA2012US015057

PATIENT
  Age: 91 Year
  Sex: Female

DRUGS (2)
  1. COUMADIN [Concomitant]
     Indication: ATRIAL FIBRILLATION
     Dosage: UNK, UNK
     Dates: end: 20120601
  2. MAALOX ANTACID/ANTIGAS RS LIQ COOL MINT [Suspect]
     Indication: FLATULENCE
     Dosage: 30 ML, ONCE OR TWICE A DAY
     Route: 048
     Dates: end: 20110101

REACTIONS (6)
  - GENITAL RASH [None]
  - INCORRECT DOSE ADMINISTERED [None]
  - INCORRECT DRUG ADMINISTRATION DURATION [None]
  - BLOOD PRESSURE ABNORMAL [None]
  - WRONG TECHNIQUE IN DRUG USAGE PROCESS [None]
  - DIARRHOEA [None]
